FAERS Safety Report 5023778-5 (Version None)
Quarter: 2006Q2

REPORT INFORMATION
  Report Type: 
  Country: None (occurrence: None)
  Receive Date: 20060606
  Receipt Date: 20060523
  Transmission Date: 20061013
  Serious: Yes (Hospitalization)
  Sender: FDA-Public Use
  Company Number: HQWYE510223MAY06

PATIENT
  Age: 45 Year
  Sex: Female
  Weight: 54.93 kg

DRUGS (4)
  1. EFFEXOR [Suspect]
     Indication: DEPRESSION
     Dosage: SEE IMAGE
     Route: 048
     Dates: start: 20050628, end: 20050101
  2. EFFEXOR [Suspect]
     Indication: DEPRESSION
     Dosage: SEE IMAGE
     Route: 048
     Dates: start: 20050201, end: 20050628
  3. EFFEXOR [Suspect]
     Indication: DEPRESSION
     Dosage: SEE IMAGE
     Route: 048
     Dates: start: 20051219, end: 20060401
  4. REBIF [Suspect]
     Indication: MULTIPLE SCLEROSIS
     Dates: end: 20060401

REACTIONS (4)
  - DRUG INTERACTION [None]
  - DYSPHAGIA [None]
  - NAUSEA [None]
  - VOMITING [None]
